FAERS Safety Report 9355495 (Version 2)
Quarter: 2013Q3

REPORT INFORMATION
  Report Type: Spontaneous
  Country: US (occurrence: US)
  Receive Date: 20130619
  Receipt Date: 20130814
  Transmission Date: 20140515
  Serious: No
  Sender: FDA-Public Use
  Company Number: US-ROXANE LABORATORIES, INC.-2013-RO-00937RO

PATIENT
  Sex: 0

DRUGS (1)
  1. TRIAZOLAM [Suspect]

REACTIONS (2)
  - Drug ineffective [Unknown]
  - Product quality issue [Unknown]
